FAERS Safety Report 6490286-4 (Version None)
Quarter: 2009Q4

REPORT INFORMATION
  Report Type: 
  Country: None (occurrence: None)
  Receive Date: 20091211
  Receipt Date: 20091207
  Transmission Date: 20100525
  Serious: Yes (Hospitalization)
  Sender: FDA-Public Use
  Company Number: KR-ASTRAZENECA-2009SE27740

PATIENT
  Age: 11 Year
  Sex: Female

DRUGS (1)
  1. LIDOCAINE [Suspect]
     Indication: TRANSPLANT
     Route: 023

REACTIONS (2)
  - OVERDOSE [None]
  - STATUS EPILEPTICUS [None]
